FAERS Safety Report 8391978 (Version 2)
Quarter: 2015Q1

REPORT INFORMATION
  Report Type: Report from Study
  Country: US (occurrence: US)
  Receive Date: 20120206
  Receipt Date: 20150304
  Transmission Date: 20150721
  Serious: Yes (Death)
  Sender: FDA-Public Use
  Company Number: US-ROCHE-1036664

PATIENT
  Sex: Male

DRUGS (11)
  1. OXALIPLATIN. [Concomitant]
     Active Substance: OXALIPLATIN
     Route: 065
  2. IMODIUM [Concomitant]
     Active Substance: LOPERAMIDE HYDROCHLORIDE
  3. AVASTIN [Suspect]
     Active Substance: BEVACIZUMAB
     Indication: COLON CANCER
     Route: 042
  4. IRINOTECAN [Concomitant]
     Active Substance: IRINOTECAN
  5. ALOXI [Concomitant]
     Active Substance: PALONOSETRON HYDROCHLORIDE
     Route: 065
  6. LEUCOVORIN [Concomitant]
     Active Substance: LEUCOVORIN
     Route: 065
  7. AMBIEN [Concomitant]
     Active Substance: ZOLPIDEM TARTRATE
     Route: 065
  8. LORCET (UNITED STATES) [Concomitant]
  9. XELODA [Suspect]
     Active Substance: CAPECITABINE
     Indication: COLON CANCER
     Dosage: 2 TAB BID
     Route: 065
  10. 5-FLUOROURACIL [Concomitant]
     Active Substance: FLUOROURACIL
  11. DECADRON [Concomitant]
     Active Substance: DEXAMETHASONE
     Route: 065

REACTIONS (16)
  - Neck pain [Unknown]
  - Pyrexia [Unknown]
  - Dry skin [Unknown]
  - Palmar-plantar erythrodysaesthesia syndrome [Unknown]
  - Haemorrhage [Unknown]
  - Lymph node pain [Unknown]
  - Fatigue [Unknown]
  - Insomnia [Unknown]
  - Swelling [Unknown]
  - Lymphadenopathy [Unknown]
  - Lymph node pain [Recovering/Resolving]
  - Nausea [Unknown]
  - Influenza [Recovered/Resolved]
  - Neoplasm progression [Unknown]
  - Death [Fatal]
  - Diarrhoea [Recovering/Resolving]
